FAERS Safety Report 12948887 (Version 1)
Quarter: 2016Q4

REPORT INFORMATION
  Report Type: Spontaneous
  Country: PH (occurrence: PH)
  Receive Date: 20161117
  Receipt Date: 20161117
  Transmission Date: 20170207
  Serious: Yes (Death, Hospitalization, Other)
  Sender: FDA-Public Use
  Company Number: PH-BAXTER-2016BAX055752

PATIENT
  Sex: Male

DRUGS (2)
  1. DIANEAL PD-2 PERITONEAL DIALYSIS SOLUTION WITH DEXTROSE [Suspect]
     Active Substance: CALCIUM CHLORIDE\DEXTROSE\MAGNESIUM CHLORIDE\SODIUM CHLORIDE\SODIUM LACTATE
     Indication: PERITONEAL DIALYSIS
     Route: 033
  2. LACTULOSE. [Concomitant]
     Active Substance: LACTULOSE
     Indication: PRODUCT USED FOR UNKNOWN INDICATION
     Route: 065

REACTIONS (20)
  - Cardiac arrest [Fatal]
  - Gastrointestinal oedema [Unknown]
  - Peritoneal effluent abnormal [Unknown]
  - Cerebrovascular accident [Unknown]
  - Hypopnoea [Unknown]
  - Abdominal distension [Recovered/Resolved]
  - Vomiting [Unknown]
  - Restlessness [Unknown]
  - Hypertension [Unknown]
  - Peritoneal cloudy effluent [Not Recovered/Not Resolved]
  - Infection [Unknown]
  - Cardio-respiratory arrest [Recovered/Resolved]
  - Post procedural complication [Recovered/Resolved]
  - Disease complication [Unknown]
  - Peritoneal disorder [Unknown]
  - Dyspnoea [Unknown]
  - Diabetic complication [Unknown]
  - Heart rate decreased [Unknown]
  - Abdominal pain [Recovered/Resolved]
  - Hypotension [Unknown]

NARRATIVE: CASE EVENT DATE: 201610
